FAERS Safety Report 5845648-2 (Version None)
Quarter: 2008Q3

REPORT INFORMATION
  Report Type: 
  Country: None (occurrence: None)
  Receive Date: 20080731
  Receipt Date: 20080527
  Transmission Date: 20090109
  Serious: No
  Sender: FDA-Public Use
  Company Number: US200805005656

PATIENT
  Age: 67 Year
  Sex: Female

DRUGS (1)
  1. BYETTA [Suspect]
     Dosage: SUBCUTANEOUS : 10 UG, SUBCUTANEOUS
     Route: 058
     Dates: start: 20070601

REACTIONS (3)
  - BLOOD GLUCOSE DECREASED [None]
  - INCORRECT DOSE ADMINISTERED [None]
  - MALAISE [None]
